FAERS Safety Report 9059490 (Version 1)
Quarter: 2013Q1

REPORT INFORMATION
  Report Type: Spontaneous
  Country: JP (occurrence: JP)
  Receive Date: 20130211
  Receipt Date: 20130211
  Transmission Date: 20140127
  Serious: Yes (Other)
  Sender: FDA-Public Use
  Company Number: JP-MYLANLABS-2013S1002238

PATIENT
  Sex: Male

DRUGS (1)
  1. PHENYTOIN [Suspect]
     Indication: FEBRILE CONVULSION
     Route: 065

REACTIONS (1)
  - Cerebral atrophy [Not Recovered/Not Resolved]
